FAERS Safety Report 6322816-7 (Version None)
Quarter: 2009Q3

REPORT INFORMATION
  Report Type: 
  Country: None (occurrence: None)
  Receive Date: 20090824
  Receipt Date: 20090304
  Transmission Date: 20100115
  Serious: No
  Sender: FDA-Public Use
  Company Number: US-ABBOTT-09P-163-0560974-00

PATIENT
  Sex: Female
  Weight: 61.29 kg

DRUGS (9)
  1. NIASPAN [Suspect]
     Indication: BLOOD CHOLESTEROL INCREASED
     Dosage: AT BEDTIME
     Route: 048
     Dates: start: 20090226
  2. ASPIRIN [Concomitant]
     Indication: FLUSHING
     Route: 048
     Dates: start: 20090226
  3. ASPIRIN [Concomitant]
     Indication: PROPHYLAXIS
  4. AVONEX [Concomitant]
     Indication: MULTIPLE SCLEROSIS
     Route: 030
  5. DETROL [Concomitant]
     Indication: POLLAKIURIA
     Route: 048
  6. DETROL [Concomitant]
     Indication: MULTIPLE SCLEROSIS
  7. ACTONEL [Concomitant]
     Indication: OSTEOPENIA
     Route: 048
  8. TRIAMTERENE AND HYDROCHLOROTHIAZIDE [Concomitant]
     Indication: BLOOD PRESSURE
     Dosage: 37.5/25
     Route: 048
  9. TRIAMTERENE AND HYDROCHLOROTHIAZIDE [Concomitant]
     Indication: FLUID RETENTION

REACTIONS (3)
  - FLUSHING [None]
  - PRURITUS [None]
  - RASH [None]
